FAERS Safety Report 5729439-9 (Version None)
Quarter: 2008Q2

REPORT INFORMATION
  Report Type: 
  Country: None (occurrence: None)
  Receive Date: 20080506
  Receipt Date: 20080423
  Transmission Date: 20081010
  Serious: Yes (Other)
  Sender: FDA-Public Use
  Company Number: US-ELI_LILLY_AND_COMPANY-US200804006094

PATIENT
  Sex: Female

DRUGS (3)
  1. HUMALOG [Suspect]
     Dates: start: 20060101
  2. LANTUS [Concomitant]
     Dosage: AT DINNER
  3. LANTUS [Concomitant]
     Dosage: AT BEDTIME

REACTIONS (5)
  - BLINDNESS [None]
  - BLOOD GLUCOSE INCREASED [None]
  - CATARACT [None]
  - NERVOUSNESS [None]
  - VISUAL ACUITY REDUCED [None]
